FAERS Safety Report 21296334 (Version 1)
Quarter: 2022Q3

REPORT INFORMATION
  Report Type: Spontaneous
  Country: JP (occurrence: JP)
  Receive Date: 20220906
  Receipt Date: 20220906
  Transmission Date: 20221027
  Serious: Yes (Other)
  Sender: FDA-Public Use
  Company Number: JP-ALKEM LABORATORIES LIMITED-JP-ALKEM-2022-06086

PATIENT
  Age: 53 Year
  Sex: Male

DRUGS (2)
  1. TACROLIMUS [Suspect]
     Active Substance: TACROLIMUS
     Indication: Vernal keratoconjunctivitis
     Dosage: 0.1 UNK, BID
     Route: 048
  2. BETAMETHASONE DIHYDROGEN PHOSPHATE [Suspect]
     Active Substance: BETAMETHASONE DIHYDROGEN PHOSPHATE
     Indication: Vernal keratoconjunctivitis
     Dosage: 0.1%
     Route: 065

REACTIONS (1)
  - Condition aggravated [Unknown]
